FAERS Safety Report 6187273-2 (Version None)
Quarter: 2009Q2

REPORT INFORMATION
  Report Type: 
  Country: None (occurrence: None)
  Receive Date: 20090512
  Receipt Date: 20090428
  Transmission Date: 20091009
  Serious: Yes (Hospitalization)
  Sender: FDA-Public Use
  Company Number: NO-CELGENEUS-122-C5013-09040201

PATIENT
  Sex: Male
  Weight: 66 kg

DRUGS (16)
  1. CC-5013 [Suspect]
     Indication: MULTIPLE MYELOMA
     Route: 048
     Dates: start: 20081206, end: 20081222
  2. CC-5013 [Suspect]
     Route: 048
     Dates: start: 20090113, end: 20090202
  3. CC-5013 [Suspect]
     Route: 048
     Dates: start: 20090210, end: 20090225
  4. DEXAMETHASONE 4MG TAB [Suspect]
     Indication: MULTIPLE MYELOMA
     Route: 048
     Dates: start: 20081206, end: 20081222
  5. DEXAMETHASONE 4MG TAB [Suspect]
     Route: 048
     Dates: start: 20090113, end: 20090209
  6. DEXAMETHASONE 4MG TAB [Suspect]
     Route: 048
     Dates: start: 20090210, end: 20090225
  7. CYCLOPHOSPHAMIDE [Suspect]
     Indication: MULTIPLE MYELOMA
     Route: 048
     Dates: start: 20090420
  8. FUROSEMIDE [Concomitant]
     Route: 048
  9. DIGITOXIN TAB [Concomitant]
     Route: 048
  10. SEDATIVE [Concomitant]
     Indication: SEDATION
  11. OXYCONTIN [Concomitant]
     Indication: PAIN
     Route: 048
  12. PARACETAMOL [Concomitant]
     Indication: PAIN
     Route: 048
  13. DUPHALAC [Concomitant]
     Indication: PROPHYLAXIS
     Route: 048
  14. LAXOBERAL [Concomitant]
     Indication: PROPHYLAXIS
     Route: 048
  15. NOVOMIX [Concomitant]
     Indication: DIABETES MELLITUS
     Route: 058
  16. INSULATARD [Concomitant]
     Indication: DIABETES MELLITUS
     Route: 058

REACTIONS (5)
  - AGRANULOCYTOSIS [None]
  - ANAEMIA [None]
  - FALL [None]
  - SKIN LACERATION [None]
  - THROMBOCYTOPENIA [None]
